FAERS Safety Report 24438569 (Version 1)
Quarter: 2024Q4

REPORT INFORMATION
  Report Type: Spontaneous
  Country: US (occurrence: None)
  Receive Date: 20241015
  Receipt Date: 20241015
  Transmission Date: 20250115
  Serious: No
  Sender: Public
  Company Number: None

PATIENT
  Age: 79 Year
  Sex: Female

DRUGS (2)
  1. HYDROCORTISONE [Suspect]
     Active Substance: HYDROCORTISONE
     Indication: Dermatitis atopic
     Dosage: OTHER FREQUENCY : ON FACE 1-2X DAILY FOR NO MORE THAN 2 WK PER MD;?
     Route: 061
     Dates: start: 202406
  2. TRIAMCINOLONE [Suspect]
     Active Substance: TRIAMCINOLONE
     Indication: Dermatitis atopic
     Dosage: FREQUENCY : TWICE A DAY;?APPLY TWICC DAILY TO ECZEMA ROR UP TO 2 WLLKS PCR MONTH AS NLLDCD?
     Route: 061
     Dates: start: 202406

REACTIONS (1)
  - Lung neoplasm malignant [None]
